FAERS Safety Report 12322108 (Version 1)
Quarter: 2016Q2

REPORT INFORMATION
  Report Type: Report from Study
  Country: BR (occurrence: BR)
  Receive Date: 20160502
  Receipt Date: 20160502
  Transmission Date: 20160815
  Serious: Yes (Other)
  Sender: FDA-Public Use
  Company Number: BR-BRISTOL-MYERS SQUIBB COMPANY-BMS-2016-032066

PATIENT
  Sex: Female

DRUGS (2)
  1. ABATACEPT [Suspect]
     Active Substance: ABATACEPT
     Indication: RHEUMATOID ARTHRITIS
     Dosage: 3 DF, QMO
     Route: 042
  2. TIMOPTOL [Concomitant]
     Active Substance: TIMOLOL
     Indication: GLAUCOMA
     Route: 065

REACTIONS (6)
  - Chest pain [Unknown]
  - Cough [Unknown]
  - Dry eye [Unknown]
  - Throat irritation [Unknown]
  - Malaise [Unknown]
  - Asthenia [Unknown]
